FAERS Safety Report 16057790 (Version 1)
Quarter: 2019Q1

REPORT INFORMATION
  Report Type: Spontaneous
  Country: US (occurrence: US)
  Receive Date: 20190311
  Receipt Date: 20190311
  Transmission Date: 20190418
  Serious: No
  Sender: FDA-Public Use
  Company Number: US-MYLANLABS-2019M1018915

PATIENT

DRUGS (1)
  1. ESTRADIOL MYLAN [Suspect]
     Active Substance: ESTRADIOL
     Indication: HORMONE REPLACEMENT THERAPY
     Route: 062

REACTIONS (4)
  - Back pain [Unknown]
  - Gait disturbance [Unknown]
  - Pain in extremity [Unknown]
  - Neck pain [Unknown]
